FAERS Safety Report 14397449 (Version 1)
Quarter: 2018Q1

REPORT INFORMATION
  Report Type: Spontaneous
  Country: US (occurrence: US)
  Receive Date: 20180116
  Receipt Date: 20180116
  Transmission Date: 20180509
  Serious: No
  Sender: FDA-Public Use
  Company Number: US-ALLERGAN-1730762US

PATIENT
  Age: 21 Year
  Sex: Female

DRUGS (1)
  1. BOTOX [Suspect]
     Active Substance: ONABOTULINUMTOXINA
     Indication: NEUROGENIC BLADDER
     Dosage: 200 UNITS, SINGLE
     Route: 043
     Dates: start: 20170112, end: 20170112

REACTIONS (3)
  - Contraindicated product administered [Unknown]
  - Foot deformity [Not Recovered/Not Resolved]
  - Fatigue [Not Recovered/Not Resolved]

NARRATIVE: CASE EVENT DATE: 20170112
